FAERS Safety Report 13423643 (Version 1)
Quarter: 2017Q2

REPORT INFORMATION
  Report Type: Spontaneous
  Country: GB (occurrence: GB)
  Receive Date: 20170410
  Receipt Date: 20170410
  Transmission Date: 20170830
  Serious: Yes (Life-Threatening, Hospitalization, Disabling, Other)
  Sender: FDA-Public Use
  Company Number: GB-JNJFOC-20170407792

PATIENT
  Age: 46 Year
  Sex: Female

DRUGS (3)
  1. METFORMIN [Concomitant]
     Active Substance: METFORMIN HYDROCHLORIDE
     Dosage: BEFORE BREAKFAST
     Route: 065
  2. CANAGLIFLOZIN [Suspect]
     Active Substance: CANAGLIFLOZIN
     Indication: TYPE 2 DIABETES MELLITUS
     Dosage: BEFORE BREAKFAST
     Route: 048
     Dates: start: 20160119
  3. PANTOPRAZOLE [Concomitant]
     Active Substance: PANTOPRAZOLE
     Dosage: IN MORNING
     Route: 065

REACTIONS (5)
  - Vomiting [Unknown]
  - Pancreatitis [Unknown]
  - Diarrhoea [Unknown]
  - Diabetic ketoacidosis [Recovering/Resolving]
  - Hypothermia [Unknown]

NARRATIVE: CASE EVENT DATE: 20170323
